FAERS Safety Report 5442026-5 (Version None)
Quarter: 2007Q3

REPORT INFORMATION
  Report Type: 
  Country: None (occurrence: None)
  Receive Date: 20070904
  Receipt Date: 20070824
  Transmission Date: 20080115
  Serious: Yes (Other)
  Sender: FDA-Public Use
  Company Number: JP-ROCHE-508977

PATIENT
  Age: 24 Month
  Sex: Male
  Weight: 14 kg

DRUGS (4)
  1. TAMIFLU [Suspect]
     Indication: INFLUENZA
     Dosage: FORM: DRY SYRUP.
     Route: 048
     Dates: start: 20070424, end: 20070424
  2. TAMIFLU [Suspect]
     Route: 048
     Dates: start: 20070425, end: 20070427
  3. TAMIFLU [Suspect]
     Route: 048
     Dates: start: 20070428, end: 20070428
  4. CALONAL [Concomitant]
     Route: 054
     Dates: start: 20070424

REACTIONS (1)
  - ABNORMAL BEHAVIOUR [None]
